FAERS Safety Report 4357350-7 (Version None)
Quarter: 2004Q2

REPORT INFORMATION
  Report Type: 
  Country: None (occurrence: None)
  Receive Date: 20040511
  Receipt Date: 20040511
  Transmission Date: 20050107
  Serious: Yes (Hospitalization, Other)
  Sender: FDA-Public Use
  Company Number: None

PATIENT
  Age: 47 Year
  Sex: Female
  Weight: 56.9 kg

DRUGS (11)
  1. MS CONTIN [Suspect]
     Indication: PAIN
     Dosage: 60 MG PO BID
     Route: 048
  2. MS CONTIN [Suspect]
     Indication: RHEUMATOID ARTHRITIS
     Dosage: 60 MG PO BID
     Route: 048
  3. PERCOCET [Suspect]
     Indication: PAIN
     Dosage: PRN
  4. PERCOCET [Suspect]
     Indication: RHEUMATOID ARTHRITIS
     Dosage: PRN
  5. HYDROCHLOROTHIAZIDE [Concomitant]
  6. PREDNISONE [Concomitant]
  7. ZOLOFT [Concomitant]
  8. NORVASC [Concomitant]
  9. VALIUM [Concomitant]
  10. ALBUTEROL [Concomitant]
  11. ASPIRIN [Concomitant]

REACTIONS (4)
  - COMA [None]
  - FALL [None]
  - PAIN [None]
  - VOMITING [None]
